FAERS Safety Report 6000738-9 (Version None)
Quarter: 2008Q4

REPORT INFORMATION
  Report Type: 
  Country: None (occurrence: None)
  Receive Date: 20081211
  Receipt Date: 20081202
  Transmission Date: 20090506
  Serious: Yes (Hospitalization)
  Sender: FDA-Public Use
  Company Number: 200809AGG00825

PATIENT
  Age: 60 Year
  Sex: Female

DRUGS (5)
  1. TIROFIBAN HYDROCHLORIDE (AGGRASTAT (TIROFIBAN HCL)) [Suspect]
     Indication: ANGINA UNSTABLE
     Dosage: INTRAVENOUS
     Route: 042
     Dates: start: 20060919
  2. ASPIRIN [Concomitant]
  3. HEPARIN LMW [Concomitant]
  4. PLAVIX [Concomitant]
  5. METFORMIN HCL [Concomitant]

REACTIONS (1)
  - MYOCARDIAL INFARCTION [None]
